FAERS Safety Report 21597778 (Version 2)
Quarter: 2022Q4

REPORT INFORMATION
  Report Type: Spontaneous
  Country: CN (occurrence: CN)
  Receive Date: 20221115
  Receipt Date: 20221122
  Transmission Date: 20230113
  Serious: Yes (Hospitalization)
  Sender: FDA-Public Use
  Company Number: CN-002147023-NVSC2022CN256018

PATIENT
  Age: 32 Year
  Sex: Female

DRUGS (1)
  1. DEXAMETHASONE\TOBRAMYCIN [Suspect]
     Active Substance: DEXAMETHASONE\TOBRAMYCIN
     Indication: Conjunctivitis
     Dosage: 0.2 G, QD
     Route: 047
     Dates: start: 20220607, end: 20220611

REACTIONS (1)
  - Corneal disorder [Recovering/Resolving]

NARRATIVE: CASE EVENT DATE: 20220611
